FAERS Safety Report 17974577 (Version 8)
Quarter: 2020Q4

REPORT INFORMATION
  Report Type: Spontaneous
  Country: US (occurrence: US)
  Receive Date: 20200702
  Receipt Date: 20201026
  Transmission Date: 20210113
  Serious: No
  Sender: FDA-Public Use
  Company Number: US-PFIZER INC-2020253797

PATIENT
  Age: 68 Year
  Sex: Female
  Weight: 47.63 kg

DRUGS (31)
  1. IBRANCE [Suspect]
     Active Substance: PALBOCICLIB
     Indication: BREAST CANCER METASTATIC
     Dosage: 100 MG, CYCLIC (ONCE DAILY FOR 21 DAYS)
     Route: 048
     Dates: start: 20200421, end: 2020
  2. IBRANCE [Suspect]
     Active Substance: PALBOCICLIB
     Dosage: 100 MG, ALTERNATE DAY (EVERY OTHER DAY)
     Route: 048
     Dates: start: 20200421
  3. IBRANCE [Suspect]
     Active Substance: PALBOCICLIB
     Dosage: 100 MG, ALTERNATE DAY (EVERY OTHER DAY)
     Route: 048
     Dates: start: 20200526, end: 20200701
  4. IBRANCE [Suspect]
     Active Substance: PALBOCICLIB
     Dosage: 100 MG, ALTERNATE DAY (EVERY OTHER DAY)
     Route: 048
     Dates: start: 20200421
  5. GAS-X [Concomitant]
     Active Substance: DIMETHICONE
     Dosage: UNK
  6. RESVERATROL [Concomitant]
     Active Substance: DIETARY SUPPLEMENT\RESVERATROL
     Dosage: UNK
  7. SYSTANE (HYPROMELLOSE 2910 (4000 MPA.S)) [Concomitant]
     Active Substance: HYPROMELLOSE 2910 (4000 MPA.S)
     Dosage: UNK
  8. ZOLPIDEM TARTRATE. [Concomitant]
     Active Substance: ZOLPIDEM TARTRATE
     Dosage: UNK
  9. PROBIOTIC ACIDOPHILUS [LACTOBACILLUS ACIDOPHILUS] [Concomitant]
     Dosage: UNK
  10. IBRANCE [Suspect]
     Active Substance: PALBOCICLIB
     Indication: BREAST CANCER FEMALE
     Dosage: 100 MG, CYCLIC (ONE TABLET 4 DAYS PER WEEK, OFF 3 DAYS)
     Route: 048
     Dates: start: 20200421
  11. IBRANCE [Suspect]
     Active Substance: PALBOCICLIB
     Dosage: UNK, CYCLIC [5 DAYS ON AND 2 DAYS OFF]
  12. METRONIDAZOLE. [Concomitant]
     Active Substance: METRONIDAZOLE
     Dosage: UNK
  13. VITAMIN B12 [Concomitant]
     Active Substance: CYANOCOBALAMIN
     Dosage: UNK
  14. SUCRALFATE. [Concomitant]
     Active Substance: SUCRALFATE
     Dosage: UNK
  15. IBRANCE [Suspect]
     Active Substance: PALBOCICLIB
     Dosage: 100 MG, CYCLIC (EVERY OTHER DAY AND ADDED AN EXTRA DAY PER WEEK)
     Route: 048
     Dates: start: 20200616
  16. GINSENG [PANAX GINSENG] [Concomitant]
     Dosage: UNK
  17. PEPCID [Concomitant]
     Active Substance: FAMOTIDINE
     Dosage: UNK
  18. APRISO [Concomitant]
     Active Substance: MESALAMINE
     Dosage: UNK
  19. LETROZOLE. [Concomitant]
     Active Substance: LETROZOLE
     Dosage: UNK
  20. MAGNESIUM [Concomitant]
     Active Substance: MAGNESIUM
     Dosage: UNK
  21. IBRANCE [Suspect]
     Active Substance: PALBOCICLIB
     Dosage: 75 MG, ALTERNATE DAY [EVERY OTHER DAY]
     Route: 048
     Dates: start: 20200421
  22. ALPHA LIPOIC ACID [Concomitant]
     Active Substance: .ALPHA.-LIPOIC ACID
     Dosage: UNK
  23. COLLAGEN [Concomitant]
     Active Substance: COLLAGEN
     Dosage: UNK
  24. FLONASE [Concomitant]
     Active Substance: FLUTICASONE PROPIONATE
     Dosage: UNK
  25. GLUTATHIONE [Concomitant]
     Active Substance: GLUTATHIONE
     Dosage: UNK
  26. PROLIA [Concomitant]
     Active Substance: DENOSUMAB
     Dosage: UNK
  27. TYLENOL [Concomitant]
     Active Substance: ACETAMINOPHEN
     Dosage: UNK
  28. IBRANCE [Suspect]
     Active Substance: PALBOCICLIB
     Indication: BREAST CANCER METASTATIC
     Dosage: 100 MG, CYCLIC (ONE TABLET 4 DAYS PER WEEK, OFF 3 DAYS)
     Route: 048
  29. COENZYME Q10 [Concomitant]
     Active Substance: DIETARY SUPPLEMENT\UBIDECARENONE
     Dosage: UNK
  30. TRIAMCINOLONE [Concomitant]
     Active Substance: TRIAMCINOLONE
     Dosage: UNK
  31. MESALAMINE DELAYED RELEASE [Concomitant]
     Active Substance: MESALAMINE
     Dosage: UNK

REACTIONS (13)
  - Decreased immune responsiveness [Unknown]
  - Rash [Not Recovered/Not Resolved]
  - Fatigue [Not Recovered/Not Resolved]
  - Rash papular [Not Recovered/Not Resolved]
  - Vaginal infection [Not Recovered/Not Resolved]
  - Tumour marker increased [Unknown]
  - Expired product administered [Unknown]
  - Gastrooesophageal reflux disease [Recovering/Resolving]
  - Oral herpes [Unknown]
  - Hordeolum [Recovered/Resolved]
  - Arthralgia [Unknown]
  - Alopecia [Not Recovered/Not Resolved]
  - Nodule [Unknown]

NARRATIVE: CASE EVENT DATE: 2020
